FAERS Safety Report 17995107 (Version 2)
Quarter: 2020Q3

REPORT INFORMATION
  Report Type: Spontaneous
  Country: CN (occurrence: CN)
  Receive Date: 20200708
  Receipt Date: 20200717
  Transmission Date: 20201103
  Serious: Yes (Life-Threatening, Hospitalization)
  Sender: FDA-Public Use
  Company Number: CN-CELGENEUS-CHN-20200701727

PATIENT
  Age: 67 Year
  Sex: Male

DRUGS (2)
  1. SODIUM CHLORIDE. [Concomitant]
     Active Substance: SODIUM CHLORIDE
     Indication: LUNG NEOPLASM MALIGNANT
     Dosage: 100 MILLILITER
     Route: 041
     Dates: start: 20200304, end: 20200304
  2. ABRAXANE [Suspect]
     Active Substance: PACLITAXEL
     Indication: LUNG NEOPLASM MALIGNANT
     Dosage: 200 MILLIGRAM
     Route: 041
     Dates: start: 20200304, end: 20200304

REACTIONS (1)
  - Neutropenia [Recovered/Resolved]

NARRATIVE: CASE EVENT DATE: 20200310
